FAERS Safety Report 5005644-4 (Version None)
Quarter: 2006Q2

REPORT INFORMATION
  Report Type: 
  Country: None (occurrence: None)
  Receive Date: 20060517
  Receipt Date: 20060517
  Transmission Date: 20061013
  Serious: Yes (Hospitalization)
  Sender: FDA-Public Use
  Company Number: None

PATIENT
  Age: 78 Year
  Sex: Male

DRUGS (10)
  1. BUMETANIDE [Suspect]
     Indication: HYPERTENSION
     Dosage: 0.5MG QAM
     Dates: start: 20041201
  2. VALSARTAN [Suspect]
     Indication: HYPERTENSION
     Dosage: 80MG QD
     Dates: start: 20051001
  3. BACTRIM DS [Suspect]
     Indication: INFECTION
     Dosage: 1 TAB BID
     Dates: start: 20060224
  4. HYOSCYAMINE [Concomitant]
  5. GABAPENTIN [Concomitant]
  6. PROPOXYPHENE HYDROCHLORIDE [Concomitant]
  7. PRAMIPEXOLE DIHYDROCHLORIDE [Concomitant]
  8. TAMSULOSIN HCL [Concomitant]
  9. DETROL [Concomitant]
  10. ZOCOR [Concomitant]

REACTIONS (1)
  - RENAL FAILURE ACUTE [None]
